FAERS Safety Report 10073249 (Version 3)
Quarter: 2014Q2

REPORT INFORMATION
  Report Type: Report from Study
  Country: US (occurrence: US)
  Receive Date: 20140411
  Receipt Date: 20140502
  Transmission Date: 20141212
  Serious: Yes (Death, Hospitalization)
  Sender: FDA-Public Use
  Company Number: US-ACTELION-A-NJ2012-66799

PATIENT
  Age: 67 Year
  Sex: Female

DRUGS (5)
  1. VELETRI [Suspect]
     Indication: PULMONARY ARTERIAL HYPERTENSION
     Dosage: 31 NG/KG, PER MIN
     Route: 042
     Dates: start: 20120207
  2. VELETRI [Suspect]
     Dosage: 36 NG/KG, PER MIN
     Route: 041
     Dates: start: 20120202
  3. LETAIRIS [Concomitant]
  4. SILDENAFIL [Concomitant]
  5. COUMADIN [Concomitant]

REACTIONS (3)
  - Death [Fatal]
  - Right ventricular failure [Recovering/Resolving]
  - Fluid retention [Unknown]
